FAERS Safety Report 16014726 (Version 1)
Quarter: 2019Q1

REPORT INFORMATION
  Report Type: Spontaneous
  Country: BY (occurrence: BY)
  Receive Date: 20190227
  Receipt Date: 20190227
  Transmission Date: 20190418
  Serious: Yes (Other)
  Sender: FDA-Public Use
  Company Number: PHHY2019BY042828

PATIENT
  Age: 46 Year
  Sex: Male
  Weight: 80 kg

DRUGS (16)
  1. EMOXIPINE [Concomitant]
     Indication: PRODUCT USED FOR UNKNOWN INDICATION
     Dosage: UNK
     Route: 065
  2. LINEZOLID. [Suspect]
     Active Substance: LINEZOLID
     Indication: TUBERCULOSIS
     Dosage: 600 DF, QD
     Route: 048
     Dates: start: 20171013
  3. DELAMANID [Suspect]
     Active Substance: DELAMANID
     Indication: TUBERCULOSIS
     Dosage: 200 DF, QD
     Route: 048
     Dates: start: 20171013
  4. BEDAQUILINE [Suspect]
     Active Substance: BEDAQUILINE
     Indication: TUBERCULOSIS
     Dosage: 200 DF, QD
     Route: 048
     Dates: start: 20171013
  5. DILTIAZEM. [Concomitant]
     Active Substance: DILTIAZEM
     Indication: PRODUCT USED FOR UNKNOWN INDICATION
     Dosage: UNK
     Route: 065
  6. XANTINOL NICOTINATE [Concomitant]
     Indication: PRODUCT USED FOR UNKNOWN INDICATION
     Dosage: UNK
     Route: 065
  7. AMITRIPTYLINE [Concomitant]
     Active Substance: AMITRIPTYLINE
     Indication: PRODUCT USED FOR UNKNOWN INDICATION
     Dosage: UNK
     Route: 065
  8. PYRIDOXINE [Concomitant]
     Active Substance: PYRIDOXINE
     Indication: PRODUCT USED FOR UNKNOWN INDICATION
     Dosage: UNK
     Route: 065
  9. DACLATASVIR. [Concomitant]
     Active Substance: DACLATASVIR
     Indication: PRODUCT USED FOR UNKNOWN INDICATION
     Dosage: UNK
     Route: 065
  10. RAMIPRIL. [Concomitant]
     Active Substance: RAMIPRIL
     Indication: PRODUCT USED FOR UNKNOWN INDICATION
     Dosage: UNK
     Route: 065
  11. CYCLOSERINE. [Suspect]
     Active Substance: CYCLOSERINE
     Indication: TUBERCULOSIS
     Dosage: 750 DF, QD
     Route: 048
     Dates: start: 20181221
  12. SOFOSBUVIR [Concomitant]
     Active Substance: SOFOSBUVIR
     Indication: PRODUCT USED FOR UNKNOWN INDICATION
     Dosage: UNK
     Route: 065
  13. RIBOXIN [Concomitant]
     Active Substance: INOSINE
     Indication: PRODUCT USED FOR UNKNOWN INDICATION
     Dosage: UNK
     Route: 065
  14. CLOFAZIMINE [Suspect]
     Active Substance: CLOFAZIMINE
     Indication: TUBERCULOSIS
     Dosage: 100 DF, QD
     Route: 048
     Dates: start: 20171013
  15. LINEZOLID. [Suspect]
     Active Substance: LINEZOLID
     Dosage: 300 MG, QD
     Route: 048
     Dates: start: 20181216, end: 20181221
  16. BALACOL [Concomitant]
     Indication: PRODUCT USED FOR UNKNOWN INDICATION
     Dosage: UNK
     Route: 065

REACTIONS (6)
  - Neuropathy peripheral [Not Recovered/Not Resolved]
  - Hepatic enzyme increased [Recovered/Resolved]
  - Aspartate aminotransferase increased [Recovered/Resolved]
  - Incorrect product administration duration [Unknown]
  - Hypocalcaemia [Unknown]
  - Anaemia [Unknown]

NARRATIVE: CASE EVENT DATE: 20171108
